FAERS Safety Report 15019991 (Version 1)
Quarter: 2018Q2

REPORT INFORMATION
  Report Type: Report from Study
  Country: FR (occurrence: FR)
  Receive Date: 20180618
  Receipt Date: 20180618
  Transmission Date: 20180711
  Serious: Yes (Hospitalization)
  Sender: FDA-Public Use
  Company Number: FR-ROCHE-2135668

PATIENT
  Age: 46 Year
  Sex: Female
  Weight: 63.5 kg

DRUGS (8)
  1. TRASTUZUMAB. [Suspect]
     Active Substance: TRASTUZUMAB
     Dosage: DATE OF LAST DOSE (117.6 MG) PRIOR TO SAE (RENAL FAILURE): 06/JUN/2018
     Route: 042
  2. RO 6874281 (FAP IL2V MAB) [Suspect]
     Active Substance: RO-6874281
     Indication: NEOPLASM
     Dosage: THIS WAS ALSO HER MOST RECENT DOSE PRIOR TO EVENT (CATHETER INFECTION) ONSET.
     Route: 042
     Dates: start: 20180530
  3. TRASTUZUMAB. [Suspect]
     Active Substance: TRASTUZUMAB
     Indication: NEOPLASM
     Dosage: THIS WAS ALSO HER MOST RECENT DOSE PRIOR TO EVENT (CATHETER INFECTION) ONSET.
     Route: 042
     Dates: start: 20180530
  4. VANCOMYCIN [Suspect]
     Active Substance: VANCOMYCIN
     Indication: DEVICE RELATED INFECTION
     Route: 065
     Dates: start: 20180601
  5. LYRICA [Concomitant]
     Active Substance: PREGABALIN
     Route: 065
     Dates: start: 201804
  6. RO 6874281 (FAP IL2V MAB) [Suspect]
     Active Substance: RO-6874281
     Dosage: DATE OF LAST DOSE (20 MG) PRIOR TO SAE (RENAL FAILURE): 06/JUN/2018
     Route: 042
  7. KETOPROFEN. [Suspect]
     Active Substance: KETOPROFEN
     Indication: PRODUCT USED FOR UNKNOWN INDICATION
     Route: 065
     Dates: start: 2015
  8. LACTULOSE. [Concomitant]
     Active Substance: LACTULOSE
     Route: 065

REACTIONS (2)
  - Device related infection [Recovering/Resolving]
  - Renal failure [Recovering/Resolving]

NARRATIVE: CASE EVENT DATE: 20180531
